FAERS Safety Report 8531233-0 (Version None)
Quarter: 2012Q3

REPORT INFORMATION
  Report Type: 
  Country: None (occurrence: None)
  Receive Date: 20120723
  Receipt Date: 20120711
  Transmission Date: 20120928
  Serious: Yes (Other)
  Sender: FDA-Public Use
  Company Number: JP-VERTEX PHARMACEUTICALS INC.-AE-2012-010454

PATIENT
  Age: 59 Year
  Sex: Male

DRUGS (16)
  1. RIBAVIRIN [Concomitant]
     Indication: HEPATITIS C
     Route: 048
     Dates: start: 20120418, end: 20120517
  2. PEGINTERFERON ALFA-2B [Concomitant]
     Route: 058
     Dates: start: 20120501, end: 20120517
  3. TELAVIC (TELAPREVIR) [Suspect]
     Indication: HEPATITIS C
     Route: 048
     Dates: start: 20120418, end: 20120517
  4. ALLEGRA [Concomitant]
     Route: 048
  5. TELAVIC (TELAPREVIR) [Suspect]
     Route: 048
     Dates: start: 20120525
  6. PEGINTERFERON ALFA-2B [Concomitant]
     Route: 058
     Dates: start: 20120525
  7. TALION OD [Concomitant]
     Route: 048
     Dates: start: 20120418
  8. URSO 250 [Concomitant]
     Route: 048
  9. PEGINTERFERON ALFA-2B [Concomitant]
     Route: 058
     Dates: start: 20120425, end: 20120430
  10. ASTOMIN [Concomitant]
     Route: 048
     Dates: start: 20120511, end: 20120517
  11. PEGINTERFERON ALFA-2B [Concomitant]
     Indication: HEPATITIS C
     Route: 058
     Dates: start: 20120418, end: 20120424
  12. OLMESARTAN MEDOXOMIL [Concomitant]
     Route: 048
     Dates: start: 20120423, end: 20120607
  13. RIBAVIRIN [Concomitant]
     Route: 048
     Dates: start: 20120525
  14. HIRUDOID [Concomitant]
     Route: 051
  15. ADVAIR DISKUS 100/50 [Concomitant]
     Route: 055
     Dates: start: 20120518
  16. RINDERON-V [Concomitant]
     Route: 051

REACTIONS (1)
  - HYPOKALAEMIA [None]
